FAERS Safety Report 9231366 (Version 1)
Quarter: 2013Q2

REPORT INFORMATION
  Report Type: Spontaneous
  Country: SE (occurrence: SE)
  Receive Date: 20130415
  Receipt Date: 20130415
  Transmission Date: 20140414
  Serious: Yes (Other)
  Sender: FDA-Public Use
  Company Number: SE-ASTRAZENECA-2013SE22687

PATIENT
  Age: 71 Year
  Sex: Female

DRUGS (8)
  1. ENTOCORT [Suspect]
     Route: 048
     Dates: start: 201111
  2. PREDNISOLON [Suspect]
     Indication: COLITIS ULCERATIVE
     Route: 065
     Dates: start: 20100519, end: 20101225
  3. PENTASA [Concomitant]
  4. IMODIUM [Concomitant]
  5. PRECOSA [Concomitant]
  6. OVESTERIN PESSARY [Concomitant]
  7. XYLOCAIN OINTMENT [Concomitant]
  8. UNSPECIFIED [Concomitant]

REACTIONS (1)
  - Osteoporosis [Not Recovered/Not Resolved]
